FAERS Safety Report 5023740-2 (Version None)
Quarter: 2006Q2

REPORT INFORMATION
  Report Type: 
  Country: None (occurrence: None)
  Receive Date: 20060612
  Receipt Date: 20060607
  Transmission Date: 20061013
  Serious: Yes (Other)
  Sender: FDA-Public Use
  Company Number: US-JNJFOC-20060602133

PATIENT
  Sex: Female
  Weight: 53.52 kg

DRUGS (12)
  1. FENTANYL TRANSDERMAL SYSTEM [Suspect]
     Indication: PAIN
     Dosage: 2-100 MCG PATCHES
     Route: 062
  2. NEURONTIN [Concomitant]
     Indication: PAIN
     Route: 048
  3. LIPITOR [Concomitant]
     Indication: BLOOD CHOLESTEROL INCREASED
     Route: 048
  4. ZETIA [Concomitant]
     Indication: BLOOD CHOLESTEROL INCREASED
     Route: 048
  5. LEVOXYL [Concomitant]
     Indication: HYPOTHYROIDISM
     Route: 048
  6. FIORICET [Concomitant]
     Route: 048
  7. FIORICET [Concomitant]
     Route: 048
  8. FIORICET [Concomitant]
     Indication: MIGRAINE
     Dosage: 2 TO 4 TABLETS AS NEEDED, ORAL
     Route: 048
  9. PERCOCET [Concomitant]
     Route: 048
  10. PERCOCET [Concomitant]
     Indication: PAIN
     Dosage: 7.5 MG OXYCODONE/ 500 MG ACETAMINOPHEN, AS NEEDED, ORAL
     Route: 048
  11. KLONOPIN [Concomitant]
     Indication: SLEEP DISORDER
     Dosage: 1 MG, AT NIGHT, ORAL
     Route: 048
  12. METHADONE [Concomitant]
     Indication: PAIN
     Route: 048

REACTIONS (4)
  - APPLICATION SITE DERMATITIS [None]
  - APPLICATION SITE PRURITUS [None]
  - HIP FRACTURE [None]
  - PELVIC FRACTURE [None]
